FAERS Safety Report 9375106 (Version 2)
Quarter: 2013Q3

REPORT INFORMATION
  Report Type: Report from Study
  Country: JP (occurrence: JP)
  Receive Date: 20130628
  Receipt Date: 20130705
  Transmission Date: 20140515
  Serious: Yes (Other)
  Sender: FDA-Public Use
  Company Number: JP-ASTRAZENECA-2013SE48659

PATIENT
  Age: 24233 Day
  Sex: Male

DRUGS (38)
  1. AZD6140 [Suspect]
     Indication: CORONARY ARTERY DISEASE
     Route: 048
     Dates: start: 20120308, end: 20130307
  2. LIPITOR [Suspect]
     Indication: HYPERLIPIDAEMIA
     Route: 048
  3. TAKEPRON [Suspect]
     Indication: PROPHYLAXIS
     Route: 048
  4. PREDONINE [Suspect]
     Indication: ECZEMA
     Route: 048
     Dates: start: 20130214
  5. PREDONINE [Suspect]
     Indication: ECZEMA
     Route: 048
     Dates: start: 20130214
  6. JANUVIA [Suspect]
     Indication: DIABETES MELLITUS
     Route: 048
  7. RINDERON-VG [Concomitant]
     Indication: ECZEMA
     Route: 050
     Dates: start: 20120628
  8. AMLODIPINE BESILATE [Concomitant]
     Indication: HYPERTENSION
     Route: 048
  9. GENTACIN [Concomitant]
     Indication: PARONYCHIA
     Route: 050
     Dates: start: 20121230
  10. GENTACIN [Concomitant]
     Indication: ECZEMA
     Route: 050
     Dates: start: 20121230
  11. GATIFLO [Concomitant]
     Indication: EYE DISCHARGE
     Route: 050
     Dates: start: 20120628, end: 20120831
  12. GATIFLO [Concomitant]
     Indication: EYE DISCHARGE
     Route: 050
     Dates: start: 20130204
  13. HYALEIN [Concomitant]
     Indication: EYE DISCHARGE
     Route: 050
     Dates: start: 20130204
  14. ARTIST [Concomitant]
     Indication: HYPERTENSION
     Route: 048
  15. ANTEBATE [Concomitant]
     Indication: ECZEMA
     Route: 050
     Dates: start: 20120628
  16. MYSER [Concomitant]
     Indication: ECZEMA
     Route: 050
     Dates: start: 20120628
  17. GLUCOBAY [Concomitant]
     Indication: DIABETES MELLITUS
     Route: 048
  18. DERMOVATE [Concomitant]
     Indication: ECZEMA
     Route: 050
     Dates: start: 20130523
  19. DERMOVATE [Concomitant]
     Indication: ECZEMA
     Route: 050
     Dates: start: 20130523
  20. GASTER [Concomitant]
     Indication: PROPHYLAXIS
     Route: 048
     Dates: start: 20120214
  21. PROTOPIC [Concomitant]
     Indication: ECZEMA
     Route: 050
     Dates: start: 20130307
  22. PROTOPIC [Concomitant]
     Indication: ECZEMA
     Route: 050
     Dates: start: 20130307
  23. MICARDIS [Concomitant]
     Indication: HYPERTENSION
     Route: 048
  24. AMARYL [Concomitant]
     Indication: DIABETES MELLITUS
     Route: 048
  25. PROPERTO (WHITE PETROLATUM) [Concomitant]
     Indication: ECZEMA
     Route: 050
     Dates: start: 20130521
  26. PROPERTO (WHITE PETROLATUM) [Concomitant]
     Indication: ECZEMA
     Route: 050
     Dates: start: 20130521
  27. CEFZON [Concomitant]
     Indication: ECZEMA INFECTED
     Route: 048
     Dates: start: 20121101
  28. NERISONA [Concomitant]
     Indication: ECZEMA
     Route: 050
     Dates: start: 20130214
  29. NERISONA [Concomitant]
     Indication: ECZEMA
     Route: 050
     Dates: start: 20130214
  30. ALLEGRA [Concomitant]
     Indication: ECZEMA
     Route: 048
     Dates: start: 20120706, end: 20121218
  31. ALLEGRA [Concomitant]
     Indication: ECZEMA
     Route: 048
     Dates: start: 20120706, end: 20121218
  32. ALLEGRA [Concomitant]
     Indication: ECZEMA
     Route: 048
     Dates: start: 20121227, end: 20130120
  33. ALLEGRA [Concomitant]
     Indication: ECZEMA
     Route: 048
     Dates: start: 20121227, end: 20130120
  34. ALLEGRA [Concomitant]
     Indication: ECZEMA
     Route: 048
     Dates: start: 20130214
  35. ALLEGRA [Concomitant]
     Indication: ECZEMA
     Route: 048
     Dates: start: 20130214
  36. ALESION [Concomitant]
     Indication: ECZEMA
     Route: 048
     Dates: start: 20130307
  37. ALESION [Concomitant]
     Indication: ECZEMA
     Route: 048
     Dates: start: 20130307
  38. ASA [Concomitant]
     Route: 048

REACTIONS (1)
  - Lymphoma cutis [Not Recovered/Not Resolved]
